FAERS Safety Report 7960948-8 (Version None)
Quarter: 2011Q4

REPORT INFORMATION
  Report Type: 
  Country: None (occurrence: None)
  Receive Date: 20111201
  Receipt Date: 20111201
  Transmission Date: 20120403
  Serious: Yes (Hospitalization, Disabling)
  Sender: FDA-Public Use
  Company Number: None

PATIENT
  Sex: Female
  Weight: 65.7716 kg

DRUGS (1)
  1. ACTOS [Suspect]
     Indication: DIABETES MELLITUS
     Dosage: 45 MG 1 TIME DAILY MOUTH
     Route: 048
     Dates: start: 20070104, end: 20111115

REACTIONS (5)
  - CARDIAC FAILURE CONGESTIVE [None]
  - BLADDER CANCER [None]
  - HYSTERECTOMY [None]
  - GASTROINTESTINAL INFECTION [None]
  - CYSTOSCOPY [None]
